FAERS Safety Report 8898926 (Version 1)
Quarter: 2012Q4

REPORT INFORMATION
  Report Type: 
  Country: US (occurrence: US)
  Receive Date: 20121108
  Receipt Date: 20121108
  Transmission Date: 20130627
  Serious: No
  Sender: FDA-Public Use
  Company Number: US-AMGEN-USASP2012027887

PATIENT
  Age: 64 Year
  Sex: Male

DRUGS (7)
  1. ENBREL [Suspect]
     Indication: PSORIASIS
     Dosage: 50 mg, 2 times/wk
     Route: 058
  2. DIOVAN [Concomitant]
     Dosage: 40 mg, UNK
  3. CARVEDILOL [Concomitant]
     Dosage: 6.25 mg, UNK
  4. BENZONATATE [Concomitant]
     Dosage: 100 mg, UNK
  5. VITAMIN B12                        /00260201/ [Concomitant]
     Dosage: 100 mug, UNK
  6. CLOBETASOL 0.05% [Concomitant]
  7. GENTAMICIN [Concomitant]
     Dosage: 0.1 %, UNK

REACTIONS (3)
  - Increased tendency to bruise [Unknown]
  - Injection site bruising [Unknown]
  - Psoriasis [Unknown]
